FAERS Safety Report 19355715 (Version 1)
Quarter: 2021Q2

REPORT INFORMATION
  Report Type: Spontaneous
  Country: US (occurrence: US)
  Receive Date: 20210601
  Receipt Date: 20210601
  Transmission Date: 20210717
  Serious: No
  Sender: FDA-Public Use
  Company Number: US-DRREDDYS-USA/USA/21/0135980

PATIENT
  Age: 66 Year
  Sex: Female

DRUGS (1)
  1. ZENATANE [Suspect]
     Active Substance: ISOTRETINOIN
     Indication: PRODUCT USED FOR UNKNOWN INDICATION
     Dosage: RMA ISSUE DATE: 01/FEBRUARY/2021 3:36:51 PM, 22/MARCH/2021 12:11:03 PM, 26/APRIL/2021 3:14:31 PM

REACTIONS (3)
  - Photosensitivity reaction [Unknown]
  - Drug ineffective [Unknown]
  - Product quality issue [Unknown]
